FAERS Safety Report 20680450 (Version 2)
Quarter: 2022Q3

REPORT INFORMATION
  Report Type: Spontaneous
  Country: PL (occurrence: PL)
  Receive Date: 20220406
  Receipt Date: 20220702
  Transmission Date: 20221026
  Serious: Yes (Hospitalization, Other)
  Sender: FDA-Public Use
  Company Number: None

PATIENT
  Age: 18 Year
  Sex: Female

DRUGS (11)
  1. SERTRALINE [Suspect]
     Active Substance: SERTRALINE HYDROCHLORIDE
     Indication: Depression
     Dosage: 50 MILLIGRAM, UNK
     Route: 065
  2. OLANZAPINE [Suspect]
     Active Substance: OLANZAPINE
     Indication: Depression
     Dosage: 20 MILLIGRAM, UNK, ALSO RECEIVED 10 MG, 15 MG AND 20 MG
  3. LITHIUM [Suspect]
     Active Substance: LITHIUM
     Indication: Depression
     Dosage: 2 DOSAGE FORM, DAILY, TABLETS
     Route: 048
  4. RISPERIDONE [Suspect]
     Active Substance: RISPERIDONE
     Indication: Depression
     Dosage: 1 MILLIGRAM, UNK
     Route: 065
  5. CARBAMAZEPINE [Suspect]
     Active Substance: CARBAMAZEPINE
     Indication: Depression
     Dosage: 400 MILLIGRAM, UNK
     Route: 065
  6. CLONAZEPAM [Concomitant]
     Active Substance: CLONAZEPAM
     Indication: Bipolar I disorder
     Dosage: UNK, SINGLE DOSE
     Route: 030
  7. LEVOTHYROXINE [Concomitant]
     Active Substance: LEVOTHYROXINE
     Indication: Hypothyroidism
  8. HALOPERIDOL [Suspect]
     Active Substance: HALOPERIDOL
     Indication: Bipolar I disorder
     Dosage: UNK, SINGLE DOSE
     Route: 030
  9. LITHIUM [Suspect]
     Active Substance: LITHIUM
     Indication: Depression
     Dosage: 2 DOSAGE FORM, DAILY, TABLETS
     Route: 048
  10. LEVOTHYROXINE [Concomitant]
     Active Substance: LEVOTHYROXINE
     Indication: Hypothyroidism
  11. RISPERIDONE [Suspect]
     Active Substance: RISPERIDONE
     Indication: Product used for unknown indication
     Dosage: 2 MILLIGRAM, UNK
     Route: 065

REACTIONS (9)
  - Amenorrhoea [Unknown]
  - Somnolence [Recovered/Resolved]
  - Hyperprolactinaemia [Unknown]
  - Therapy partial responder [Unknown]
  - Body mass index increased [Unknown]
  - Bipolar disorder [Unknown]
  - Withdrawal syndrome [Recovered/Resolved]
  - Drug ineffective [Unknown]
  - Thyroid hormones decreased [Unknown]
